FAERS Safety Report 8826354 (Version 1)
Quarter: 2012Q4

REPORT INFORMATION
  Report Type: 
  Country: US (occurrence: US)
  Receive Date: 20121008
  Receipt Date: 20121008
  Transmission Date: 20130627
  Serious: No
  Sender: FDA-Public Use
  Company Number: US-PFIZER INC-2012245452

PATIENT
  Age: 33 Year
  Sex: Male

DRUGS (1)
  1. XALKORI [Suspect]
     Indication: LUNG NEOPLASM MALIGNANT
     Dosage: UNK
     Dates: start: 201205

REACTIONS (6)
  - Vomiting [Unknown]
  - Headache [Unknown]
  - Neck pain [Unknown]
  - Gastroenteritis [Unknown]
  - Sinusitis [Unknown]
  - Nausea [Unknown]
